FAERS Safety Report 8110311-4 (Version None)
Quarter: 2012Q1

REPORT INFORMATION
  Report Type: 
  Country: None (occurrence: None)
  Receive Date: 20120202
  Receipt Date: 20120130
  Transmission Date: 20120608
  Serious: Yes (Hospitalization)
  Sender: FDA-Public Use
  Company Number: FR-ROCHE-1028889

PATIENT
  Sex: Male
  Weight: 55 kg

DRUGS (3)
  1. AVASTIN [Suspect]
     Dates: start: 20120110
  2. TEMOZOLOMIDE [Suspect]
     Indication: BRAIN NEOPLASM MALIGNANT
     Dosage: RECENT DOSE ON 13 DEC 2011
     Dates: start: 20111209
  3. AVASTIN [Suspect]
     Indication: BRAIN NEOPLASM MALIGNANT
     Dosage: RECENT DOSE ON 23 DEC 2011
     Dates: start: 20111209

REACTIONS (2)
  - RECTAL HAEMORRHAGE [None]
  - ANAL FISSURE [None]
